FAERS Safety Report 6279708-1 (Version None)
Quarter: 2009Q3

REPORT INFORMATION
  Report Type: 
  Country: None (occurrence: None)
  Receive Date: 20090723
  Receipt Date: 20090710
  Transmission Date: 20100115
  Serious: Yes (Death)
  Sender: FDA-Public Use
  Company Number: RO-BAYER-200924603GPV

PATIENT
  Age: 3 Year
  Sex: Male
  Weight: 15 kg

DRUGS (4)
  1. MAGNEVIST [Suspect]
     Indication: NUCLEAR MAGNETIC RESONANCE IMAGING
     Dosage: TOTAL DAILY DOSE: 1.5 ML
     Route: 041
     Dates: start: 20090629, end: 20090629
  2. MIDAZOLAM HCL [Concomitant]
     Indication: ANAESTHESIA
     Dosage: TOTAL DAILY DOSE: 2.5 ML
     Route: 065
     Dates: start: 20090629, end: 20090629
  3. PROPOFOL [Concomitant]
     Indication: ANAESTHESIA
     Dosage: AS USED: 20 MG
     Route: 041
     Dates: start: 20090629, end: 20090629
  4. OXYGEN [Concomitant]
     Indication: ANAESTHESIA
     Route: 055
     Dates: start: 20090629, end: 20090629

REACTIONS (1)
  - CARDIO-RESPIRATORY ARREST [None]
